FAERS Safety Report 10201602 (Version 1)
Quarter: 2014Q2

REPORT INFORMATION
  Report Type: Spontaneous
  Country: GB (occurrence: GB)
  Receive Date: 20140528
  Receipt Date: 20140528
  Transmission Date: 20141212
  Serious: Yes (Other)
  Sender: FDA-Public Use
  Company Number: GB-009507513-1405GBR011892

PATIENT
  Age: 40 Year
  Sex: Male

DRUGS (1)
  1. BOCEPREVIR [Suspect]
     Indication: HEPATITIS C
     Route: 048
     Dates: start: 20140214, end: 20140424

REACTIONS (1)
  - Neutropenic sepsis [Not Recovered/Not Resolved]
